FAERS Safety Report 9239080 (Version 1)
Quarter: 2013Q2

REPORT INFORMATION
  Report Type: Spontaneous
  Country: IT (occurrence: IT)
  Receive Date: 20130418
  Receipt Date: 20130418
  Transmission Date: 20140414
  Serious: Yes (Other)
  Sender: FDA-Public Use
  Company Number: IT-PFIZER INC-2013121706

PATIENT
  Age: 79 Year
  Sex: Female

DRUGS (8)
  1. LYRICA [Suspect]
     Indication: SCIATICA
     Dosage: 75 MG, 1X/DAY
     Route: 048
     Dates: start: 20130227
  2. LYRICA [Suspect]
     Dosage: 75 MG, 2X/DAY
     Route: 048
  3. CELEBREX [Suspect]
     Indication: SCIATICA
     Dosage: 200 MG, 2X/DAY
     Route: 048
  4. OMEPRAZOLE [Concomitant]
     Indication: PROPHYLAXIS
     Route: 065
  5. QUINAPRIL [Concomitant]
     Route: 065
  6. MANIDIPINE [Concomitant]
     Route: 065
  7. CALCIUM [Concomitant]
     Route: 065
  8. VITAMIN D [Concomitant]
     Route: 065

REACTIONS (1)
  - Tubulointerstitial nephritis [Recovered/Resolved]
